FAERS Safety Report 4656747-5 (Version None)
Quarter: 2005Q2

REPORT INFORMATION
  Report Type: 
  Country: None (occurrence: None)
  Receive Date: 20050506
  Receipt Date: 20050427
  Transmission Date: 20051028
  Serious: Yes (Other)
  Sender: FDA-Public Use
  Company Number: 213981

PATIENT
  Age: 31 Year
  Sex: Female

DRUGS (1)
  1. XOLAIR [Suspect]
     Indication: ASTHMA
     Dosage: 300 MG, SUBCUTANEOUS
     Route: 058
     Dates: start: 20050222, end: 20050222

REACTIONS (3)
  - ARTHRALGIA [None]
  - MOVEMENT DISORDER [None]
  - PERIARTHRITIS [None]
